FAERS Safety Report 10089352 (Version 1)
Quarter: 2014Q2

REPORT INFORMATION
  Report Type: Spontaneous
  Country: AU (occurrence: AU)
  Receive Date: 20140421
  Receipt Date: 20140421
  Transmission Date: 20141212
  Serious: Yes (Hospitalization)
  Sender: FDA-Public Use
  Company Number: AU-MYLANLABS-2014S1008188

PATIENT
  Sex: Male

DRUGS (1)
  1. EPIPEN [Suspect]
     Indication: ANAPHYLACTIC REACTION

REACTIONS (7)
  - Hypersensitivity [Unknown]
  - Needle issue [Unknown]
  - Pharyngeal oedema [Unknown]
  - Asphyxia [Unknown]
  - Cardiac arrest [Unknown]
  - Apparent death [Unknown]
  - Fall [Unknown]
